FAERS Safety Report 8378667-5 (Version None)
Quarter: 2012Q2

REPORT INFORMATION
  Report Type: 
  Country: None (occurrence: None)
  Receive Date: 20120522
  Receipt Date: 20120518
  Transmission Date: 20120825
  Serious: Yes (Hospitalization, Disabling, Other)
  Sender: FDA-Public Use
  Company Number: PHHY2011AT89280

PATIENT
  Age: 52 Year
  Sex: Male
  Weight: 108 kg

DRUGS (6)
  1. CARBOPLATIN [Suspect]
     Indication: CHEMOTHERAPY
     Dosage: UNK
     Route: 042
     Dates: start: 20110324, end: 20110601
  2. ALIMTA [Suspect]
     Indication: CHEMOTHERAPY
     Dosage: 500 MG/M2, UNK
     Dates: start: 20110324, end: 20110713
  3. ALIMTA [Suspect]
     Dosage: UNK
     Dates: start: 20120430
  4. AVASTIN [Suspect]
     Indication: CHEMOTHERAPY
     Dosage: 7.5 MG/KG, UNK
     Dates: start: 20110324, end: 20110713
  5. AVASTIN [Suspect]
     Dates: end: 20110921
  6. CARBOPLATIN [Suspect]
     Indication: CHEMOTHERAPY
     Dosage: UNK
     Dates: start: 20110601, end: 20110713

REACTIONS (6)
  - CARDIOMYOPATHY [None]
  - CARDIAC FAILURE [None]
  - NEOPLASM PROGRESSION [None]
  - RADIATION PNEUMONITIS [None]
  - LEFT VENTRICULAR FAILURE [None]
  - DYSPNOEA [None]
